FAERS Safety Report 16019367 (Version 1)
Quarter: 2019Q1

REPORT INFORMATION
  Report Type: Spontaneous
  Country: DE (occurrence: DE)
  Receive Date: 20190228
  Receipt Date: 20190228
  Transmission Date: 20190418
  Serious: Yes (Congenital Anomaly)
  Sender: FDA-Public Use
  Company Number: DE-TEVA-2019-DE-1015684

PATIENT
  Age: 0 Year
  Sex: Male
  Weight: 2.93 kg

DRUGS (6)
  1. ESCITALOPRAM [Suspect]
     Active Substance: ESCITALOPRAM OXALATE
     Indication: DEPRESSION
     Dosage: 20 MILLIGRAM DAILY;
     Route: 064
     Dates: start: 20171009, end: 20180703
  2. PROGESTAN [Concomitant]
     Active Substance: PROGESTERONE
     Indication: ASSISTED FERTILISATION
     Dosage: 600 MILLIGRAM DAILY; 600 [MG/D (3 X 200 MG/D) ]
     Route: 064
  3. DEKRISTOL [Concomitant]
     Active Substance: CHOLECALCIFEROL
     Indication: VITAMIN D DEFICIENCY
     Dosage: 2000 [I.E./D (BIS 1000 I.E./D) ]
     Route: 064
  4. FEMIBION SCHWANGERSCHAFT 1 [Concomitant]
     Indication: PROPHYLAXIS OF NEURAL TUBE DEFECT
     Dosage: .8 MILLIGRAM DAILY; 0.8 [MG/D ]
     Route: 064
     Dates: start: 20171009, end: 20180703
  5. L-THYROXIN [Concomitant]
     Active Substance: LEVOTHYROXINE SODIUM
     Indication: HYPOTHYROIDISM
     Dosage: 112 [?G/D (BIS 75 ?G/D) ]
     Route: 064
     Dates: start: 20171009, end: 20180703
  6. PROGYNOVA [Concomitant]
     Active Substance: ESTRADIOL VALERATE
     Indication: ASSISTED FERTILISATION
     Dosage: 3 MILLIGRAM DAILY; 3 [MG/D (3 X 1 MG/D) ]
     Route: 064

REACTIONS (1)
  - Congenital hydronephrosis [Not Recovered/Not Resolved]
